FAERS Safety Report 7927633 (Version 5)
Quarter: 2013Q2

REPORT INFORMATION
  Report Type: Report from Study
  Country: US (occurrence: US)
  Receive Date: 20110503
  Receipt Date: 20130521
  Transmission Date: 20140414
  Serious: No
  Sender: FDA-Public Use
  Company Number: PHHY2011US33935

PATIENT
  Age: 80 Year
  Sex: Female
  Weight: 60 kg

DRUGS (11)
  1. TASIGNA [Suspect]
     Indication: CHRONIC MYELOID LEUKAEMIA
     Dosage: 300 MG, BID
     Route: 048
  2. TASIGNA [Suspect]
     Dosage: 150 MG, BID
     Route: 048
  3. XANAX [Concomitant]
     Dosage: 0.25 MG, UNK
  4. COUMADINE [Concomitant]
     Dosage: 1 MG, UNK
  5. LIPITOR [Concomitant]
     Dosage: 10 MG, UNK
  6. LEVOTHYROXINE [Concomitant]
     Dosage: 25 UG, UNK
  7. PROZAC [Concomitant]
     Dosage: 10 MG, UNK
  8. VITAMIN D [Concomitant]
     Dosage: 400 U, UNK
  9. CALCIUM [Concomitant]
     Dosage: 500 MG, UNK
  10. OMEGA 3 [Concomitant]
     Dosage: 1000 MG, UNK
  11. URELLE [Concomitant]

REACTIONS (9)
  - Nervous system disorder [Unknown]
  - Constipation [Recovering/Resolving]
  - Diarrhoea [Recovering/Resolving]
  - Myalgia [Recovering/Resolving]
  - Pruritus [Recovering/Resolving]
  - Rash [Unknown]
  - Chills [Unknown]
  - Fatigue [Unknown]
  - Visual impairment [Unknown]
